FAERS Safety Report 7190620-6 (Version None)
Quarter: 2010Q4

REPORT INFORMATION
  Report Type: 
  Country: None (occurrence: None)
  Receive Date: 20101223
  Receipt Date: 20101216
  Transmission Date: 20110411
  Serious: Yes (Death, Hospitalization, Other)
  Sender: FDA-Public Use
  Company Number: CL-GENZYME-CLOF-1001359

PATIENT
  Age: 21 Year
  Sex: Male

DRUGS (3)
  1. CLOLAR [Suspect]
     Indication: ACUTE LYMPHOCYTIC LEUKAEMIA
     Dosage: 40 MG/M2, QDX5
     Route: 042
     Dates: start: 20101115, end: 20101119
  2. CYCLOPHOSPHAMIDE [Suspect]
     Indication: ACUTE LYMPHOCYTIC LEUKAEMIA
     Dosage: UNK
     Dates: start: 20101115, end: 20101119
  3. ETOPOSIDE [Suspect]
     Indication: ACUTE LYMPHOCYTIC LEUKAEMIA
     Dosage: UNK
     Dates: start: 20101115, end: 20101119

REACTIONS (5)
  - CONVULSION [None]
  - DEATH [None]
  - FEBRILE NEUTROPENIA [None]
  - SENSORY DISTURBANCE [None]
  - THROMBOCYTOPENIA [None]
